FAERS Safety Report 16734616 (Version 1)
Quarter: 2019Q3

REPORT INFORMATION
  Report Type: Spontaneous
  Country: ES (occurrence: ES)
  Receive Date: 20190823
  Receipt Date: 20190823
  Transmission Date: 20191005
  Serious: Yes (Hospitalization)
  Sender: FDA-Public Use
  Company Number: ES-TEVA-2019-ES-1095777

PATIENT
  Age: 62 Year
  Sex: Female

DRUGS (2)
  1. CISPLATINO (644A) [Suspect]
     Active Substance: CISPLATIN
     Dates: start: 20181204, end: 20190403
  2. ETOPOSIDO (518A) [Suspect]
     Active Substance: ETOPOSIDE
     Dates: start: 20181204, end: 20190403

REACTIONS (2)
  - Platelet disorder [Recovered/Resolved]
  - Neutropenia [Recovered/Resolved]

NARRATIVE: CASE EVENT DATE: 20190415
